FAERS Safety Report 5858554-4 (Version None)
Quarter: 2008Q3

REPORT INFORMATION
  Report Type: 
  Country: None (occurrence: None)
  Receive Date: 20080826
  Receipt Date: 20080815
  Transmission Date: 20090109
  Serious: Yes (Hospitalization)
  Sender: FDA-Public Use
  Company Number: US-SANOFI-SYNTHELABO-A03200802571

PATIENT
  Sex: Female
  Weight: 81.6 kg

DRUGS (6)
  1. AMBIEN [Suspect]
     Indication: INSOMNIA
     Route: 048
     Dates: start: 20080301, end: 20080601
  2. AMBIEN [Suspect]
     Dosage: UNK
     Route: 048
     Dates: start: 20080620, end: 20080626
  3. ABILIFY [Concomitant]
     Indication: HALLUCINATION, AUDITORY
     Route: 065
     Dates: start: 20080101
  4. KLONOPIN [Concomitant]
     Indication: ANXIETY
     Route: 065
     Dates: start: 20070101
  5. TRILEPTAL [Concomitant]
     Indication: AFFECTIVE DISORDER
     Route: 065
     Dates: start: 20060101
  6. CLOZARIL [Concomitant]
     Indication: HALLUCINATION, AUDITORY
     Route: 065

REACTIONS (6)
  - AKINAESTHESIA [None]
  - DEPRESSION [None]
  - DRUG INEFFECTIVE [None]
  - HALLUCINATION [None]
  - PSYCHOTIC DISORDER [None]
  - SUICIDAL IDEATION [None]
